FAERS Safety Report 6176631-8 (Version None)
Quarter: 2009Q2

REPORT INFORMATION
  Report Type: 
  Country: None (occurrence: None)
  Receive Date: 20090501
  Receipt Date: 20081017
  Transmission Date: 20091009
  Serious: Yes (Hospitalization)
  Sender: FDA-Public Use
  Company Number: FR-ALEXION-A200800138

PATIENT

DRUGS (11)
  1. SOLIRIS [Suspect]
     Indication: PAROXYSMAL NOCTURNAL HAEMOGLOBINURIA
     Dosage: UNK MG, SINGLE
     Route: 042
     Dates: start: 20070314, end: 20070314
  2. SOLIRIS [Suspect]
     Dosage: UNK MG, SINGLE
     Route: 042
     Dates: start: 20080523, end: 20080523
  3. SOLIRIS [Suspect]
     Dosage: UNK MG, SINGLE
     Route: 042
     Dates: start: 20080607, end: 20080607
  4. SOLIRIS [Suspect]
     Dosage: UNK MG, SINGLE
     Route: 042
     Dates: start: 20080620, end: 20080620
  5. SOLIRIS [Suspect]
     Dosage: UNK MG, SINGLE
     Route: 042
     Dates: start: 20080704, end: 20080704
  6. SOLIRIS [Suspect]
     Dosage: UNK MG, Q14 DAYS
     Route: 042
     Dates: start: 20080718
  7. KARDEGIC                           /00002703/ [Concomitant]
     Indication: THROMBOSIS PROPHYLAXIS
     Dosage: 75 MG, UNK
     Route: 048
  8. LEDERPAX [Concomitant]
     Dosage: 50 MG, UNK
     Route: 048
  9. ORACILLINE                         /00001801/ [Concomitant]
     Indication: INFECTION PROPHYLAXIS
     Dosage: 2 M, UNK
     Route: 048
     Dates: start: 20070201
  10. DEPAMIDE [Concomitant]
     Indication: BIPOLAR I DISORDER
     Route: 048
  11. HALDOL [Concomitant]
     Indication: BIPOLAR I DISORDER
     Route: 048

REACTIONS (2)
  - BILE DUCT STONE [None]
  - CYTOLYTIC HEPATITIS [None]
